FAERS Safety Report 6382684-4 (Version None)
Quarter: 2009Q3

REPORT INFORMATION
  Report Type: 
  Country: None (occurrence: None)
  Receive Date: 20090928
  Receipt Date: 20090928
  Transmission Date: 20100115
  Serious: Yes (Hospitalization)
  Sender: FDA-Public Use
  Company Number: None

PATIENT
  Age: 43 Year
  Sex: Female
  Weight: 60.782 kg

DRUGS (1)
  1. YAZ [Suspect]
     Indication: MENOPAUSE
     Dosage: 1X DAILY PO
     Route: 048
     Dates: start: 20090225, end: 20090905

REACTIONS (2)
  - DEEP VEIN THROMBOSIS [None]
  - PULMONARY EMBOLISM [None]
